FAERS Safety Report 13966652 (Version 1)
Quarter: 2017Q3

REPORT INFORMATION
  Report Type: Spontaneous
  Country: US (occurrence: US)
  Receive Date: 20170914
  Receipt Date: 20170914
  Transmission Date: 20171128
  Serious: No
  Sender: FDA-Public Use
  Company Number: US-TEVA-806050ACC

PATIENT
  Age: 66 Year
  Sex: Female

DRUGS (5)
  1. OXYBUTIN [Concomitant]
     Active Substance: OXYBUTYNIN
  2. TAMOXIFEN [Concomitant]
     Active Substance: TAMOXIFEN
  3. COPAXONE [Suspect]
     Active Substance: GLATIRAMER ACETATE
     Indication: MULTIPLE SCLEROSIS
     Dosage: PEN
     Route: 058
     Dates: start: 20150624
  4. SIMVASTATIN. [Concomitant]
     Active Substance: SIMVASTATIN
  5. NITROFURANTOIN. [Concomitant]
     Active Substance: NITROFURANTOIN

REACTIONS (2)
  - Musculoskeletal stiffness [Not Recovered/Not Resolved]
  - Motor dysfunction [Not Recovered/Not Resolved]
